FAERS Safety Report 23193816 (Version 1)
Quarter: 2023Q4

REPORT INFORMATION
  Report Type: Spontaneous
  Country: CA (occurrence: CA)
  Receive Date: 20231116
  Receipt Date: 20231116
  Transmission Date: 20240109
  Serious: Yes (Other)
  Sender: FDA-Public Use
  Company Number: CA-ELI_LILLY_AND_COMPANY-CA202311004063

PATIENT
  Age: 13 Year
  Sex: Female
  Weight: 33 kg

DRUGS (5)
  1. SOMATROPIN [Suspect]
     Active Substance: SOMATROPIN
     Indication: Growth hormone deficiency
     Dosage: 1.4 MG, UNKNOWN
     Route: 058
  2. SOMATROPIN [Suspect]
     Active Substance: SOMATROPIN
     Dosage: 1.65 MG, UNKNOWN
     Route: 058
  3. SOMATROPIN [Suspect]
     Active Substance: SOMATROPIN
     Dosage: 1800 UG, UNKNOWN
     Route: 058
  4. SOMATROPIN [Suspect]
     Active Substance: SOMATROPIN
     Dosage: 1600 UG, UNKNOWN
     Route: 058
  5. SOMATROPIN [Suspect]
     Active Substance: SOMATROPIN
     Dosage: 1.6 MG, UNKNOWN
     Route: 058

REACTIONS (5)
  - Blood alkaline phosphatase increased [Not Recovered/Not Resolved]
  - Blood follicle stimulating hormone increased [Not Recovered/Not Resolved]
  - Blood test abnormal [Not Recovered/Not Resolved]
  - Snoring [Not Recovered/Not Resolved]
  - Initial insomnia [Not Recovered/Not Resolved]
